FAERS Safety Report 21488333 (Version 1)
Quarter: 2022Q4

REPORT INFORMATION
  Report Type: Spontaneous
  Country: FR (occurrence: FR)
  Receive Date: 20221020
  Receipt Date: 20221020
  Transmission Date: 20230113
  Serious: Yes (Hospitalization, Other)
  Sender: FDA-Public Use
  Company Number: FR-002147023-NVSC2022FR091432

PATIENT
  Age: 38 Year
  Sex: Female

DRUGS (3)
  1. OTEZLA [Suspect]
     Active Substance: APREMILAST
     Indication: Product used for unknown indication
     Dosage: UNK
     Route: 065
  2. COSENTYX [Suspect]
     Active Substance: SECUKINUMAB
     Indication: Psoriasis
     Dosage: 300 MG, QMO
     Route: 058
     Dates: start: 202003, end: 202202
  3. COSENTYX [Suspect]
     Active Substance: SECUKINUMAB
     Dosage: 300 MG, QW (1 INJECTION WEEKLY, THEN AFTER 5 WEEKS)
     Route: 058
     Dates: start: 202002, end: 202003

REACTIONS (6)
  - Metastases to lymph nodes [Unknown]
  - Papillary thyroid cancer [Unknown]
  - Thyroid cancer [Unknown]
  - Drug ineffective [Unknown]
  - Thyroid mass [Unknown]
  - Thyroid calcification [Unknown]

NARRATIVE: CASE EVENT DATE: 20210707
